FAERS Safety Report 21802270 (Version 1)
Quarter: 2022Q4

REPORT INFORMATION
  Report Type: Report from Study
  Country: US (occurrence: US)
  Receive Date: 20221230
  Receipt Date: 20221230
  Transmission Date: 20230112
  Serious: No
  Sender: FDA-Public Use
  Company Number: US-ACORDA-ACO_173260_2022

PATIENT
  Age: 74 Year
  Sex: Male

DRUGS (5)
  1. INBRIJA [Suspect]
     Active Substance: LEVODOPA
     Indication: Parkinson^s disease
     Dosage: 84 MILLIGRAMS (2 CAPSULES), PRN, NOT TO EXCEED 5 DOSES A DAY
     Dates: start: 20220814
  2. INBRIJA [Suspect]
     Active Substance: LEVODOPA
     Indication: On and off phenomenon
     Dosage: 84 MILLIGRAMS (2 CAPSULES), PRN, NOT TO EXCEED 5 DOSES A DAY
     Dates: start: 20220814
  3. INBRIJA [Suspect]
     Active Substance: LEVODOPA
     Dosage: 84 MILLIGRAMS (2 CAPSULES), PRN, NOT TO EXCEED 5 DOSES A DAY
     Dates: start: 20220814
  4. RYTARY [Concomitant]
     Active Substance: CARBIDOPA\LEVODOPA
     Indication: Product used for unknown indication
     Dosage: 61.25/245MG, 3 PILLS AT 6:30 AND 11 AM, 2 PILLS AT 4 AND 8 PM
     Route: 065
  5. CARBIDOPA\LEVODOPA [Concomitant]
     Active Substance: CARBIDOPA\LEVODOPA
     Indication: On and off phenomenon
     Dosage: 25/250 MG: 0.5 PILL, PRN
     Route: 065

REACTIONS (3)
  - Tremor [Recovered/Resolved]
  - Paraesthesia [Recovered/Resolved]
  - Cough [Recovered/Resolved]

NARRATIVE: CASE EVENT DATE: 20220814
